FAERS Safety Report 12089210 (Version 1)
Quarter: 2016Q1

REPORT INFORMATION
  Report Type: Spontaneous
  Country: US (occurrence: None)
  Receive Date: 20160212
  Receipt Date: 20160212
  Transmission Date: 20160526
  Serious: Yes (Other)
  Sender: FDA-Public Use
  Company Number: 000933858

PATIENT
  Sex: Female

DRUGS (1)
  1. EUCERIN DAILY PROTECTION BODY (AVOBENZONE\HOMOSALATE\OCTISALATE) [Suspect]
     Active Substance: AVOBENZONE\HOMOSALATE\OCTISALATE
     Dosage: BROAD SPECTRUM SPF15 SUNSCREEN UNKNOWN TOPICAL 060?LOTION WAS USED FOR ^A WHILE^
     Route: 061

REACTIONS (2)
  - Urticaria [None]
  - Dyspnoea [None]

NARRATIVE: CASE EVENT DATE: 20160119
